FAERS Safety Report 25915414 (Version 2)
Quarter: 2025Q4

REPORT INFORMATION
  Report Type: Spontaneous
  Country: KW (occurrence: KW)
  Receive Date: 20251013
  Receipt Date: 20251112
  Transmission Date: 20260117
  Serious: Yes (Life-Threatening, Hospitalization)
  Sender: EMD SERONO INC
  Company Number: KW-Merck Healthcare KGaA-2025050672

PATIENT
  Age: 53 Year
  Sex: Female
  Weight: 133 kg

DRUGS (1)
  1. MAVENCLAD [Suspect]
     Active Substance: CLADRIBINE
     Indication: Multiple sclerosis
     Dosage: FIRST COURSE THERAPY

REACTIONS (7)
  - Thrombotic thrombocytopenic purpura [Recovered/Resolved]
  - Dizziness [Unknown]
  - Vertigo [Unknown]
  - Dysarthria [Unknown]
  - Paraesthesia [Unknown]
  - Agitation [Unknown]
  - Depressed level of consciousness [Unknown]

NARRATIVE: CASE EVENT DATE: 20250801
